FAERS Safety Report 5133981-1 (Version None)
Quarter: 2006Q4

REPORT INFORMATION
  Report Type: 
  Country: None (occurrence: None)
  Receive Date: 20061018
  Receipt Date: 20061012
  Transmission Date: 20070319
  Serious: Yes (Hospitalization)
  Sender: FDA-Public Use
  Company Number: 230348

PATIENT
  Age: 47 Year
  Sex: Male
  Weight: 68 kg

DRUGS (6)
  1. ERLOTINIB (ERLOTINIB) TABLET [Suspect]
     Indication: NEOPLASM MALIGNANT
     Dosage: 100 MG, ORAL
     Route: 048
     Dates: start: 20060104, end: 20060303
  2. AVASTIN [Suspect]
     Indication: NEOPLASM MALIGNANT
     Dosage: 853 MG,
     Dates: start: 20060104, end: 20060301
  3. CISPLATIN [Suspect]
     Indication: NEOPLASM MALIGNANT
     Dates: end: 20060301
  4. KEFLEX [Concomitant]
  5. FLEXERIL [Concomitant]
  6. ATIVAN [Concomitant]

REACTIONS (13)
  - ANXIETY [None]
  - CONDITION AGGRAVATED [None]
  - EAR PAIN [None]
  - MUSCLE STRAIN [None]
  - MUSCLE TIGHTNESS [None]
  - NECK PAIN [None]
  - ODYNOPHAGIA [None]
  - OEDEMA [None]
  - ORAL INTAKE REDUCED [None]
  - PAIN IN JAW [None]
  - PAROTITIS [None]
  - TRISMUS [None]
  - VIRAL INFECTION [None]
